FAERS Safety Report 4910141-8 (Version None)
Quarter: 2006Q1

REPORT INFORMATION
  Report Type: 
  Country: None (occurrence: None)
  Receive Date: 20060209
  Receipt Date: 20060127
  Transmission Date: 20060701
  Serious: Yes (Death)
  Sender: FDA-Public Use
  Company Number: L05-USA-03935-34

PATIENT
  Age: 23 Year
  Sex: Female

DRUGS (3)
  1. DILTIAZEM [Suspect]
  2. FLECAINIDE ACETATE [Suspect]
  3. ASPIRIN [Suspect]

REACTIONS (1)
  - COMPLETED SUICIDE [None]
